FAERS Safety Report 5324266-9 (Version None)
Quarter: 2007Q2

REPORT INFORMATION
  Report Type: 
  Country: None (occurrence: None)
  Receive Date: 20070514
  Receipt Date: 20070503
  Transmission Date: 20071010
  Serious: Yes (Disabling, Other)
  Sender: FDA-Public Use
  Company Number: CA-SHR-CA-2007-009853

PATIENT
  Age: 60 Year
  Sex: Male

DRUGS (14)
  1. MAGNEVIST [Suspect]
     Dosage: 15 ML, 1 DOSE
     Route: 042
     Dates: start: 20060412, end: 20060412
  2. CONTRAST MEDIA [Suspect]
     Indication: COMPUTERISED TOMOGRAM
     Dosage: UNK, 1 DOSE
  3. OMNISCAN [Suspect]
  4. BACLOFEN [Concomitant]
     Dosage: 10 MG, 3X/DAY
  5. CARBAMAZEPINE [Concomitant]
     Dosage: 100 MG, BED T.
  6. VITAMIN B-12 [Concomitant]
     Dosage: 1000 A?G, 1X/DAY
  7. DOCUSATE SODIUM [Concomitant]
     Dosage: 100 MG, 1X/DAY
  8. DOMPERIDONE [Concomitant]
     Dosage: 10 MG, 3X/DAY
  9. FUROSEMIDE [Concomitant]
     Dosage: 20 MG, 1X/DAY
  10. LANSOPRAZOLE [Concomitant]
     Dosage: 30 MG, 2X/DAY
  11. UREMOL [Concomitant]
     Dosage: UNK, 2X/DAY
  12. WARFARIN [Concomitant]
     Dosage: 12 MG, 1X/DAY
  13. METFORMIN HCL [Concomitant]
  14. GLYBURIDE [Concomitant]

REACTIONS (1)
  - NEPHROGENIC FIBROSING DERMOPATHY [None]
